FAERS Safety Report 25112349 (Version 1)
Quarter: 2025Q1

REPORT INFORMATION
  Report Type: Spontaneous
  Country: ES (occurrence: ES)
  Receive Date: 20250324
  Receipt Date: 20250324
  Transmission Date: 20250408
  Serious: Yes (Hospitalization, Other)
  Sender: PFIZER
  Company Number: None

PATIENT
  Age: 72 Year
  Sex: Male

DRUGS (3)
  1. VANCOMYCIN HYDROCHLORIDE [Suspect]
     Active Substance: VANCOMYCIN HYDROCHLORIDE
     Indication: Postoperative wound infection
     Dosage: 1 G, 3X/DAY (FREQ:8 H)
     Route: 042
     Dates: start: 20250203, end: 20250225
  2. CEFTAZIDIME [Suspect]
     Active Substance: CEFTAZIDIME
     Indication: Postoperative wound infection
     Dosage: 2 G, 3X/DAY (FREQ:8 H)
     Route: 042
     Dates: start: 20250203, end: 20250211
  3. CEFEPIME [Suspect]
     Active Substance: CEFEPIME HYDROCHLORIDE
     Indication: Postoperative wound infection
     Dosage: 2 G, 3X/DAY (FREQ:8 H)
     Route: 042
     Dates: start: 20250211

REACTIONS (3)
  - Nephropathy toxic [Not Recovered/Not Resolved]
  - Neurotoxicity [Not Recovered/Not Resolved]
  - Antibiotic level above therapeutic [Unknown]

NARRATIVE: CASE EVENT DATE: 20250219
